FAERS Safety Report 13949525 (Version 1)
Quarter: 2017Q3

REPORT INFORMATION
  Report Type: Report from Study
  Country: US (occurrence: US)
  Receive Date: 20170908
  Receipt Date: 20170908
  Transmission Date: 20171128
  Serious: Yes (Other)
  Sender: FDA-Public Use
  Company Number: US-JAZZ-2017-US-008204

PATIENT
  Sex: Female
  Weight: 75.74 kg

DRUGS (18)
  1. COZAAR [Concomitant]
     Active Substance: LOSARTAN POTASSIUM
  2. TRAMADOL HCL [Concomitant]
     Active Substance: TRAMADOL HYDROCHLORIDE
  3. BIOTIN [Concomitant]
     Active Substance: BIOTIN
  4. HYDROCHLOROTHIAZIDE. [Concomitant]
     Active Substance: HYDROCHLOROTHIAZIDE
  5. LYRICA [Concomitant]
     Active Substance: PREGABALIN
  6. XYREM [Suspect]
     Active Substance: SODIUM OXYBATE
     Dosage: DOSE ADJUSTMENT
     Route: 048
     Dates: start: 200509, end: 201309
  7. FISH OIL [Concomitant]
     Active Substance: FISH OIL
  8. RESTASIS [Concomitant]
     Active Substance: CYCLOSPORINE
  9. XANAX [Concomitant]
     Active Substance: ALPRAZOLAM
  10. XYREM [Suspect]
     Active Substance: SODIUM OXYBATE
     Indication: FIBROMYALGIA
     Dosage: 2.25 G, BID
     Route: 048
     Dates: start: 200507, end: 200509
  11. LOSARTAN POTASSSIUM [Concomitant]
  12. CALCIUM 600 WITH VITAMIN D [Concomitant]
  13. XYREM [Suspect]
     Active Substance: SODIUM OXYBATE
     Dosage: 3.75 G, BID
     Route: 048
     Dates: start: 201309
  14. TYLENOL ARTHRITIS PAIN [Concomitant]
     Active Substance: ACETAMINOPHEN
  15. GLUCOSAMINE [Concomitant]
     Active Substance: GLUCOSAMINE
  16. SAVELLA [Concomitant]
     Active Substance: MILNACIPRAN HYDROCHLORIDE
  17. BUSPIRONE HCL [Concomitant]
     Active Substance: BUSPIRONE HYDROCHLORIDE
  18. VITAMIN B COMPLEX                  /02319001/ [Concomitant]

REACTIONS (6)
  - Menopause [Unknown]
  - Weight fluctuation [Unknown]
  - Hypersensitivity [Unknown]
  - Hangover [Unknown]
  - Condition aggravated [Unknown]
  - Sleep apnoea syndrome [Unknown]
